FAERS Safety Report 14656010 (Version 1)
Quarter: 2018Q1

REPORT INFORMATION
  Report Type: Spontaneous
  Country: JP (occurrence: JP)
  Receive Date: 20180319
  Receipt Date: 20180319
  Transmission Date: 20180509
  Serious: Yes (Life-Threatening, Hospitalization, Other)
  Sender: FDA-Public Use
  Company Number: JP-MYLANLABS-2018M1016789

PATIENT
  Age: 63 Year
  Sex: Male

DRUGS (2)
  1. BETAMETHASONE. [Suspect]
     Active Substance: BETAMETHASONE
     Indication: DURAL ARTERIOVENOUS FISTULA
     Dosage: 4MG
     Route: 042
  2. GLYCERIN                           /00200601/ [Suspect]
     Active Substance: GLYCERIN
     Indication: DURAL ARTERIOVENOUS FISTULA
     Dosage: 400ML
     Route: 065

REACTIONS (4)
  - Condition aggravated [Recovering/Resolving]
  - Respiratory failure [Recovered/Resolved]
  - Dural arteriovenous fistula [Recovering/Resolving]
  - Quadriparesis [Recovering/Resolving]
